FAERS Safety Report 7368687-1 (Version None)
Quarter: 2011Q1

REPORT INFORMATION
  Report Type: 
  Country: None (occurrence: None)
  Receive Date: 20110304
  Receipt Date: 20110223
  Transmission Date: 20110831
  Serious: Yes (Hospitalization)
  Sender: FDA-Public Use
  Company Number: WAES 1102USA03260

PATIENT
  Age: 82 Year
  Sex: Female

DRUGS (8)
  1. FOSAMAX [Suspect]
     Indication: PROPHYLAXIS
     Dosage: 70 MG/WKY/PO
     Route: 048
     Dates: start: 19951204
  2. ZETIA [Concomitant]
  3. ASPIRIN [Concomitant]
  4. CALCIUM (UNSPECIFIED) [Concomitant]
  5. VEGF TRAP-EYE UNK [Suspect]
     Indication: MACULAR DEGENERATION
     Dosage: 2 MG/Q4W ; 2 MG/PRN ; 2 MG/PRN
     Dates: start: 20090914, end: 20100524
  6. VEGF TRAP-EYE UNK [Suspect]
     Indication: MACULAR DEGENERATION
     Dosage: 2 MG/Q4W ; 2 MG/PRN ; 2 MG/PRN
     Dates: start: 20100628
  7. VEGF TRAP-EYE UNK [Suspect]
     Indication: MACULAR DEGENERATION
     Dosage: 2 MG/Q4W ; 2 MG/PRN ; 2 MG/PRN
     Dates: start: 20080721, end: 20090722
  8. SYNTHROID [Concomitant]

REACTIONS (6)
  - ATELECTASIS [None]
  - ANAEMIA [None]
  - GASTROINTESTINAL DISORDER [None]
  - WHITE BLOOD CELL COUNT INCREASED [None]
  - ANGINA PECTORIS [None]
  - DYSPNOEA [None]
